FAERS Safety Report 9445494 (Version 1)
Quarter: 2013Q3

REPORT INFORMATION
  Report Type: Spontaneous
  Country: US (occurrence: US)
  Receive Date: 20130807
  Receipt Date: 20130807
  Transmission Date: 20140515
  Serious: No
  Sender: FDA-Public Use
  Company Number: US-TEVA-400593USA

PATIENT
  Sex: 0

DRUGS (1)
  1. MEDROXYPROGESTERONE [Suspect]

REACTIONS (3)
  - Weight decreased [Unknown]
  - Hypotonia [Unknown]
  - Collagen disorder [Unknown]
